FAERS Safety Report 9277186 (Version 3)
Quarter: 2015Q4

REPORT INFORMATION
  Report Type: Report from Study
  Country: CA (occurrence: VN)
  Receive Date: 20130508
  Receipt Date: 20151120
  Transmission Date: 20160305
  Serious: Yes (Death, Other)
  Sender: FDA-Public Use
  Company Number: CA-ROCHE-1063381

PATIENT
  Age: 42 Year
  Sex: Male

DRUGS (3)
  1. ZELBORAF [Suspect]
     Active Substance: VEMURAFENIB
     Indication: METASTATIC MALIGNANT MELANOMA
     Dosage: UNKNOWN STOP DATE
     Route: 048
     Dates: start: 20120404
  2. ZELBORAF [Suspect]
     Active Substance: VEMURAFENIB
     Route: 048
     Dates: start: 20120709
  3. MINOCYCLINE\MINOCYCLINE HYDROCHLORIDE [Concomitant]
     Active Substance: MINOCYCLINE\MINOCYCLINE HYDROCHLORIDE
     Route: 065

REACTIONS (7)
  - Photosensitivity reaction [Unknown]
  - Myalgia [Not Recovered/Not Resolved]
  - Death [Fatal]
  - Dermatitis acneiform [Unknown]
  - Rash generalised [Recovered/Resolved]
  - Sunburn [Recovered/Resolved]
  - Rash [Unknown]

NARRATIVE: CASE EVENT DATE: 20120412
